FAERS Safety Report 22620242 (Version 1)
Quarter: 2023Q2

REPORT INFORMATION
  Report Type: Spontaneous
  Country: US (occurrence: None)
  Receive Date: 20230616
  Receipt Date: 20230616
  Transmission Date: 20230721
  Serious: Yes (Other)
  Sender: FDA-Public Use
  Company Number: None

PATIENT
  Age: 18 Year
  Sex: Female
  Weight: 69.75 kg

DRUGS (1)
  1. LO LOESTRIN FE [Suspect]
     Active Substance: ETHINYL ESTRADIOL\NORETHINDRONE ACETATE
     Indication: Menstrual disorder
     Dosage: FREQUENCY : DAILY;?
     Route: 048
     Dates: start: 20230413, end: 20230615

REACTIONS (1)
  - Alopecia [None]

NARRATIVE: CASE EVENT DATE: 20230615
